FAERS Safety Report 15668632 (Version 1)
Quarter: 2018Q4

REPORT INFORMATION
  Report Type: Report from Study
  Country: None (occurrence: US)
  Receive Date: 20181129
  Receipt Date: 20181129
  Transmission Date: 20190205
  Serious: Yes (Hospitalization, Other)
  Sender: FDA-Public Use
  Company Number: US-ABBVIE-18K-163-2569260-00

PATIENT
  Sex: Female

DRUGS (2)
  1. VENCLEXTA [Suspect]
     Active Substance: VENETOCLAX
     Route: 048
     Dates: start: 201811
  2. VENCLEXTA [Suspect]
     Active Substance: VENETOCLAX
     Indication: CHRONIC LYMPHOCYTIC LEUKAEMIA
     Route: 048
     Dates: start: 20181102, end: 201811

REACTIONS (5)
  - Dizziness [Not Recovered/Not Resolved]
  - Lip swelling [Not Recovered/Not Resolved]
  - Pain [Unknown]
  - Hospitalisation [Not Recovered/Not Resolved]
  - Splenectomy [Unknown]

NARRATIVE: CASE EVENT DATE: 201811
